FAERS Safety Report 6115084-2 (Version None)
Quarter: 2009Q1

REPORT INFORMATION
  Report Type: 
  Country: None (occurrence: None)
  Receive Date: 20090313
  Receipt Date: 20090309
  Transmission Date: 20090719
  Serious: Yes (Hospitalization)
  Sender: FDA-Public Use
  Company Number: B0564103A

PATIENT
  Age: 83 Year
  Sex: Female

DRUGS (6)
  1. AUGMENTIN '125' [Suspect]
     Dosage: 1G THREE TIMES PER DAY
     Route: 048
     Dates: start: 20090114, end: 20090121
  2. VASTEN [Concomitant]
     Dosage: 20MG PER DAY
     Route: 048
  3. PREVISCAN [Concomitant]
     Dosage: 5MG PER DAY
     Route: 048
  4. LOVENOX [Concomitant]
     Dosage: .4ML PER DAY
     Route: 058
  5. FERROUS SULFATE TAB [Concomitant]
     Dosage: 1UNIT TWICE PER DAY
     Route: 048
  6. SPECIAFOLDINE [Concomitant]
     Dosage: 1UNIT THREE TIMES PER DAY
     Route: 048

REACTIONS (4)
  - ABDOMINAL PAIN [None]
  - CLOSTRIDIUM DIFFICILE COLITIS [None]
  - DIARRHOEA [None]
  - PSEUDOMEMBRANOUS COLITIS [None]
